FAERS Safety Report 10210047 (Version 1)
Quarter: 2014Q2

REPORT INFORMATION
  Report Type: Spontaneous
  Country: GB (occurrence: GB)
  Receive Date: 20140602
  Receipt Date: 20140602
  Transmission Date: 20141212
  Serious: Yes (Other)
  Sender: FDA-Public Use
  Company Number: GB-TEVA-483469ISR

PATIENT
  Age: 10 Year
  Sex: Female
  Weight: 14.96 kg

DRUGS (2)
  1. AMOXICILLIN [Suspect]
     Indication: INFECTION
     Dosage: 15 ML DAILY;
     Route: 048
     Dates: start: 20140509
  2. CALPOL [Concomitant]
     Dosage: 6+

REACTIONS (1)
  - Malaise [Unknown]
